FAERS Safety Report 8143536-2 (Version None)
Quarter: 2012Q1

REPORT INFORMATION
  Report Type: 
  Country: None (occurrence: None)
  Receive Date: 20120217
  Receipt Date: 20120215
  Transmission Date: 20120608
  Serious: Yes (Other)
  Sender: FDA-Public Use
  Company Number: FR-PFIZER INC-2012037036

PATIENT
  Age: 11 Year
  Sex: Female

DRUGS (2)
  1. PIPERACILLIN AND TAZOBACTAM [Suspect]
     Indication: FEBRILE NEUTROPENIA
  2. VINCRISTINE [Interacting]
     Indication: ACUTE LYMPHOCYTIC LEUKAEMIA

REACTIONS (4)
  - ILEUS PARALYTIC [None]
  - AUTONOMIC NEUROPATHY [None]
  - CHOLESTASIS [None]
  - DRUG INTERACTION [None]
